FAERS Safety Report 11049261 (Version 16)
Quarter: 2019Q3

REPORT INFORMATION
  Report Type: Spontaneous
  Country: US (occurrence: US)
  Receive Date: 20150420
  Receipt Date: 20190924
  Transmission Date: 20191004
  Serious: Yes (Hospitalization, Other)
  Sender: FDA-Public Use
  Company Number: US-ACTELION-A-NJ2015-115334

PATIENT
  Age: 31 Year
  Sex: Female
  Weight: 60.77 kg

DRUGS (12)
  1. DIGOXIN. [Concomitant]
     Active Substance: DIGOXIN
     Dosage: 125 MG, QOD
  2. LETAIRIS [Concomitant]
     Active Substance: AMBRISENTAN
     Dosage: 10 MG, QD
  3. VELETRI [Suspect]
     Active Substance: EPOPROSTENOL
     Indication: PULMONARY ARTERIAL HYPERTENSION
     Dosage: 30 NG/KG, PER MIN
     Route: 042
  4. COUMADIN [Concomitant]
     Active Substance: WARFARIN SODIUM
  5. VELETRI [Suspect]
     Active Substance: EPOPROSTENOL
     Dosage: 11 NG/KG, PER MIN
     Route: 042
     Dates: start: 20150324
  6. JANTOVEN [Concomitant]
     Active Substance: WARFARIN SODIUM
     Dosage: 2 MG, PRN
  7. VELETRI [Suspect]
     Active Substance: EPOPROSTENOL
     Dosage: 24 NG/KG, PER MIN
     Route: 042
  8. VELETRI [Suspect]
     Active Substance: EPOPROSTENOL
     Dosage: 8 NG/KG, PER MIN
     Route: 042
     Dates: start: 20150323
  9. FLONASE [Concomitant]
     Active Substance: FLUTICASONE PROPIONATE
     Dosage: 50 MCG, BID
  10. TYVASO [Suspect]
     Active Substance: TREPROSTINIL
     Indication: PULMONARY ARTERIAL HYPERTENSION
     Dosage: 18-72MCG, QID
     Route: 055
     Dates: start: 20111011, end: 20150326
  11. ADCIRCA [Concomitant]
     Active Substance: TADALAFIL
     Dosage: 20 MG, BID
  12. LEVOTHYROXINE. [Concomitant]
     Active Substance: LEVOTHYROXINE
     Dosage: 75 MCG, QD

REACTIONS (22)
  - Neuropathy peripheral [Unknown]
  - Nasopharyngitis [Unknown]
  - Dermatitis contact [Recovering/Resolving]
  - Application site pruritus [Recovering/Resolving]
  - Pain in jaw [Unknown]
  - Device breakage [Unknown]
  - Abdominal discomfort [Unknown]
  - Catheter site irritation [Recovering/Resolving]
  - Brain neoplasm [Unknown]
  - Syncope [Not Recovered/Not Resolved]
  - Nausea [Unknown]
  - Flushing [Unknown]
  - Catheter site dermatitis [Recovering/Resolving]
  - Sinusitis [Unknown]
  - Neoplasm malignant [Unknown]
  - Headache [Unknown]
  - Diarrhoea [Unknown]
  - Seizure [Unknown]
  - Speech disorder [Unknown]
  - Catheter site erythema [Recovering/Resolving]
  - Dyspnoea exertional [Not Recovered/Not Resolved]
  - Brain oedema [Unknown]

NARRATIVE: CASE EVENT DATE: 201503
